FAERS Safety Report 5020906-2 (Version None)
Quarter: 2006Q2

REPORT INFORMATION
  Report Type: 
  Country: None (occurrence: None)
  Receive Date: 20060608
  Receipt Date: 20060529
  Transmission Date: 20061013
  Serious: Yes (Other)
  Sender: FDA-Public Use
  Company Number: CH-BRISTOL-MYERS SQUIBB COMPANY-13399787

PATIENT
  Age: 71 Year
  Sex: Male

DRUGS (15)
  1. SINEMET [Suspect]
     Indication: PARKINSON'S DISEASE
     Route: 048
     Dates: start: 20060214
  2. SYMMETREL [Suspect]
     Indication: PARKINSON'S DISEASE
     Route: 048
     Dates: start: 20060224
  3. SIFROL [Suspect]
     Indication: PARKINSON'S DISEASE
     Dates: start: 20060214
  4. IMATINIB MESILATE [Concomitant]
  5. SELIPRAN [Concomitant]
  6. TORSEMIDE [Concomitant]
  7. ALDACTONE [Concomitant]
     Dates: end: 20060220
  8. DILATREND [Concomitant]
  9. ASPIRIN [Concomitant]
  10. SINTROM [Concomitant]
  11. MAGNESIUM ASPARTATE [Concomitant]
  12. NITRODERM [Concomitant]
  13. RECORMON [Concomitant]
  14. HALDOL [Concomitant]
     Dates: end: 20060222
  15. QUETIAPINE FUMARATE [Concomitant]
     Dates: start: 20060222

REACTIONS (2)
  - AGGRESSION [None]
  - HALLUCINATION [None]
